FAERS Safety Report 4667800-4 (Version None)
Quarter: 2005Q2

REPORT INFORMATION
  Report Type: 
  Country: None (occurrence: None)
  Receive Date: 20050520
  Receipt Date: 20050506
  Transmission Date: 20051028
  Serious: Yes (Hospitalization)
  Sender: FDA-Public Use
  Company Number: AU-MERCK-0505AUS00053

PATIENT
  Age: 61 Year
  Sex: Female

DRUGS (10)
  1. ZOCOR [Suspect]
     Indication: GENERAL SYMPTOM
     Route: 048
     Dates: start: 19970101, end: 19980101
  2. ZOCOR [Suspect]
     Route: 048
     Dates: start: 19980101, end: 19980101
  3. ZOCOR [Suspect]
     Route: 048
  4. ZOCOR [Suspect]
     Indication: BLOOD CHOLESTEROL INCREASED
     Route: 048
     Dates: start: 19970101, end: 19980101
  5. ZOCOR [Suspect]
     Route: 048
     Dates: start: 19980101, end: 19980101
  6. ZOCOR [Suspect]
     Route: 048
  7. WARFARIN [Concomitant]
     Route: 065
  8. NITROGLYCERIN [Concomitant]
     Indication: ANGINA PECTORIS
     Route: 065
  9. IRBESARTAN [Concomitant]
     Route: 065
  10. METOPROLOL [Concomitant]
     Route: 048

REACTIONS (7)
  - BACK PAIN [None]
  - BLOOD URINE PRESENT [None]
  - KIDNEY INFECTION [None]
  - MYALGIA [None]
  - NECK PAIN [None]
  - URINARY TRACT INFECTION [None]
  - WHITE BLOOD CELL COUNT DECREASED [None]
